FAERS Safety Report 19120717 (Version 1)
Quarter: 2021Q2

REPORT INFORMATION
  Report Type: Spontaneous
  Country: US (occurrence: US)
  Receive Date: 20210411
  Receipt Date: 20210411
  Transmission Date: 20210717
  Serious: Yes (Hospitalization)
  Sender: FDA-Public Use
  Company Number: None

PATIENT
  Age: 73 Year
  Sex: Female

DRUGS (10)
  1. ASPIRIN. [Concomitant]
     Active Substance: ASPIRIN
  2. COREG [Concomitant]
     Active Substance: CARVEDILOL
  3. WARFARIN [Concomitant]
     Active Substance: WARFARIN
  4. ALBUTEROL. [Concomitant]
     Active Substance: ALBUTEROL
  5. BUMEX [Concomitant]
     Active Substance: BUMETANIDE
  6. FERROUS SULFATE. [Concomitant]
     Active Substance: FERROUS SULFATE
  7. MAG OX [Concomitant]
     Active Substance: MAGNESIUM OXIDE
  8. ZOCOR [Concomitant]
     Active Substance: SIMVASTATIN
  9. OMNIPAQUE [Suspect]
     Active Substance: IOHEXOL
     Indication: X-RAY WITH CONTRAST
     Dosage: ?          OTHER FREQUENCY:ONCE;?
     Route: 040
     Dates: start: 20210129, end: 20210129
  10. VITAMIN C [Concomitant]
     Active Substance: ASCORBIC ACID

REACTIONS (2)
  - Blood creatine increased [None]
  - Renal tubular necrosis [None]

NARRATIVE: CASE EVENT DATE: 20210202
